FAERS Safety Report 16191788 (Version 2)
Quarter: 2020Q1

REPORT INFORMATION
  Report Type: Spontaneous
  Country: FR (occurrence: FR)
  Receive Date: 20190412
  Receipt Date: 20200130
  Transmission Date: 20200409
  Serious: Yes (Hospitalization)
  Sender: FDA-Public Use
  Company Number: FR-ASTRAZENECA-2019SE53316

PATIENT
  Age: 71 Year
  Sex: Male
  Weight: 84.6 kg

DRUGS (3)
  1. IMFINZI [Suspect]
     Active Substance: DURVALUMAB
     Indication: HEPATOCELLULAR CARCINOMA
     Route: 041
     Dates: start: 20181129, end: 20181226
  2. TREMELIMUMAB. [Concomitant]
     Active Substance: TREMELIMUMAB
     Dates: start: 20181129, end: 20181226
  3. PYOSTACINE [Suspect]
     Active Substance: PRISTINAMYCIN
     Indication: BRONCHITIS
     Route: 048
     Dates: start: 20181230, end: 20190103

REACTIONS (2)
  - Diarrhoea [Recovered/Resolved]
  - Mesenteric panniculitis [Recovered/Resolved]

NARRATIVE: CASE EVENT DATE: 20190103
